FAERS Safety Report 12367501 (Version 1)
Quarter: 2016Q2

REPORT INFORMATION
  Report Type: Spontaneous
  Country: US (occurrence: US)
  Receive Date: 20160513
  Receipt Date: 20160513
  Transmission Date: 20160815
  Serious: No
  Sender: FDA-Public Use
  Company Number: US-JNJFOC-20160400804

PATIENT
  Age: 54 Year
  Sex: Male

DRUGS (6)
  1. NORCO [Suspect]
     Active Substance: ACETAMINOPHEN\HYDROCODONE BITARTRATE
     Indication: SHOULDER OPERATION
     Dosage: 10/325 FIVE A DAY AS NEEDED EVERY 4 TO 5 HOURS
     Route: 065
     Dates: start: 2008
  2. TYLENOL WITH CODEINE [Suspect]
     Active Substance: ACETAMINOPHEN\CODEINE PHOSPHATE
     Indication: NERVE INJURY
     Dosage: STARTED TAKING 3 TO 4 YEARS AGO
     Route: 048
  3. TYLENOL WITH CODEINE [Suspect]
     Active Substance: ACETAMINOPHEN\CODEINE PHOSPHATE
     Indication: SHOULDER OPERATION
     Dosage: STARTED TAKING 3 TO 4 YEARS AGO
     Route: 048
  4. CENTRUM SILVER ADULTS 50+ [Suspect]
     Active Substance: MINERALS\VITAMINS
     Indication: ELDERLY
     Route: 048
     Dates: start: 20160101, end: 201601
  5. NORCO [Suspect]
     Active Substance: ACETAMINOPHEN\HYDROCODONE BITARTRATE
     Indication: NERVE INJURY
     Dosage: 10/325 FIVE A DAY AS NEEDED EVERY 4 TO 5 HOURS
     Route: 065
     Dates: start: 2008
  6. CENTRUM SILVER ADULTS 50+ [Suspect]
     Active Substance: MINERALS\VITAMINS
     Indication: VITAMIN SUPPLEMENTATION
     Route: 048
     Dates: start: 20160101, end: 201601

REACTIONS (5)
  - Nausea [Recovered/Resolved]
  - Product use issue [Recovered/Resolved]
  - Off label use [Recovered/Resolved]
  - Drug screen positive [Unknown]
  - Dizziness [Recovered/Resolved]

NARRATIVE: CASE EVENT DATE: 201601
